FAERS Safety Report 4553233-8 (Version None)
Quarter: 2005Q1

REPORT INFORMATION
  Report Type: 
  Country: None (occurrence: None)
  Receive Date: 20050113
  Receipt Date: 20050103
  Transmission Date: 20050727
  Serious: Yes (Hospitalization)
  Sender: FDA-Public Use
  Company Number: 2005CG00034

PATIENT
  Age: 87 Year
  Sex: Male
  Weight: 70 kg

DRUGS (11)
  1. OMEPRAZOLE [Suspect]
     Dosage: 20 MG DAILY PO
     Route: 048
     Dates: end: 20041203
  2. BRICANYL [Suspect]
  3. CORTANCYL [Suspect]
     Indication: CHRONIC LYMPHOCYTIC LEUKAEMIA
     Dosage: 5 MG DAILY PO
     Route: 048
  4. CHORAMINOPHENE [Suspect]
     Indication: CHRONIC LYMPHOCYTIC LEUKAEMIA
     Dosage: 2 MG TIWK PO
     Route: 048
  5. CALCIPARINE [Suspect]
     Indication: THROMBOPHLEBITIS
     Dosage: 0.3 ML TID SQ
     Dates: start: 20041008
  6. DAFALGAN [Suspect]
     Dosage: 1 G TID PO
     Route: 048
  7. XATRAL - SLOW RELEASE [Suspect]
  8. LASILIX [Suspect]
     Dosage: 20 MG DAILY PO
     Route: 048
  9. FORLAX [Suspect]
  10. IMOVANE [Suspect]
  11. KAYEXALATE [Suspect]

REACTIONS (5)
  - CONDITION AGGRAVATED [None]
  - HAEMORRHAGE [None]
  - RENAL CYST [None]
  - RENAL FAILURE ACUTE [None]
  - THROMBOPHLEBITIS [None]
